FAERS Safety Report 20448658 (Version 1)
Quarter: 2022Q1

REPORT INFORMATION
  Report Type: Report from Study
  Country: CA (occurrence: CA)
  Receive Date: 20220209
  Receipt Date: 20220209
  Transmission Date: 20220423
  Serious: Yes (Other)
  Sender: FDA-Public Use
  Company Number: CA-JNJFOC-20210115711

PATIENT
  Age: 57 Year
  Sex: Male

DRUGS (4)
  1. REMICADE [Suspect]
     Active Substance: INFLIXIMAB
     Indication: Crohn^s disease
     Route: 042
     Dates: start: 20100706
  2. REMICADE [Suspect]
     Active Substance: INFLIXIMAB
     Indication: Product used for unknown indication
     Route: 042
  3. REMICADE [Suspect]
     Active Substance: INFLIXIMAB
     Route: 042
     Dates: start: 20210610
  4. METHOTREXATE [Concomitant]
     Active Substance: METHOTREXATE
     Indication: Product used for unknown indication
     Route: 065

REACTIONS (14)
  - Haematochezia [Not Recovered/Not Resolved]
  - Diverticulitis [Unknown]
  - Anxiety [Recovered/Resolved]
  - Bowel movement irregularity [Recovered/Resolved]
  - Sleep apnoea syndrome [Recovered/Resolved]
  - Abdominal pain lower [Not Recovered/Not Resolved]
  - Constipation [Recovered/Resolved]
  - Gastrointestinal inflammation [Unknown]
  - Arthralgia [Not Recovered/Not Resolved]
  - Stress [Recovered/Resolved]
  - Influenza [Recovering/Resolving]
  - Off label use [Unknown]
  - Product use issue [Unknown]
  - Inappropriate schedule of product administration [Unknown]

NARRATIVE: CASE EVENT DATE: 20210415
